FAERS Safety Report 7546901-7 (Version None)
Quarter: 2011Q2

REPORT INFORMATION
  Report Type: 
  Country: None (occurrence: None)
  Receive Date: 20110614
  Receipt Date: 20110610
  Transmission Date: 20111010
  Serious: Yes (Hospitalization)
  Sender: FDA-Public Use
  Company Number: FR-MERCK-1007FRA00090

PATIENT
  Age: 44 Year
  Sex: Male

DRUGS (16)
  1. BROMAZEPAM [Concomitant]
     Route: 065
  2. METFORMIN PAMOATE [Concomitant]
     Route: 065
  3. JANUVIA [Suspect]
     Route: 048
     Dates: start: 20110101, end: 20110601
  4. PRAZEPAM [Concomitant]
     Route: 065
  5. MAGNESIUM PIDOLATE [Concomitant]
     Route: 065
     Dates: end: 20100101
  6. CETIRIZINE HYDROCHLORIDE [Concomitant]
     Route: 065
  7. POLYETHYLENE GLYCOL 4000 [Concomitant]
     Route: 065
     Dates: end: 20100101
  8. GLICLAZIDE [Suspect]
     Indication: TYPE 2 DIABETES MELLITUS
     Route: 048
     Dates: start: 20100601, end: 20100601
  9. OLOPATADINE HYDROCHLORIDE [Concomitant]
     Route: 065
  10. DORZOLAMIDE HYDROCHLORIDE [Concomitant]
     Route: 065
  11. HERBS (UNSPECIFIED) [Concomitant]
     Route: 065
  12. JANUVIA [Suspect]
     Route: 048
     Dates: start: 20100101, end: 20110305
  13. PIOGLITAZONE HYDROCHLORIDE [Concomitant]
     Route: 065
     Dates: end: 20100702
  14. ALUMINUM HYDROXIDE AND MAGNESIUM TRISILICATE [Concomitant]
     Route: 048
  15. JANUVIA [Suspect]
     Indication: TYPE 2 DIABETES MELLITUS
     Route: 048
     Dates: start: 20100703, end: 20101110
  16. LACTULOSE [Concomitant]
     Route: 065

REACTIONS (9)
  - RASH [None]
  - ABDOMINAL PAIN UPPER [None]
  - CONSTIPATION [None]
  - HYPOGLYCAEMIA [None]
  - BURNING SENSATION [None]
  - PAIN IN EXTREMITY [None]
  - FATIGUE [None]
  - ANGINA PECTORIS [None]
  - ARTHRALGIA [None]
